FAERS Safety Report 4598178-2 (Version None)
Quarter: 2004Q4

REPORT INFORMATION
  Report Type: 
  Country: None (occurrence: None)
  Receive Date: 20041119
  Receipt Date: 20041119
  Transmission Date: 20050328
  Serious: Yes (Other)
  Sender: FDA-Public Use
  Company Number: None

PATIENT
  Sex: Female
  Weight: 79.3795 kg

DRUGS (2)
  1. CREST WHITESTRIPS PROCTOR AND GAMBLE [Suspect]
     Indication: TOOTH DISCOLOURATION
     Dosage: AS DIRECTED 2X/DAY ORAL
     Route: 048
     Dates: start: 20020410, end: 20021210
  2. CREST WHITESTRIPS PROCTOR AND GAMBLE [Suspect]
     Indication: TOOTH DISCOLOURATION
     Dosage: AS DIRECTED 2X/DAY ORAL
     Route: 048
     Dates: start: 20031115, end: 20031213

REACTIONS (1)
  - ORAL PAIN [None]
